FAERS Safety Report 6220285-9 (Version None)
Quarter: 2009Q2

REPORT INFORMATION
  Report Type: 
  Country: None (occurrence: None)
  Receive Date: 20090602
  Receipt Date: 20090522
  Transmission Date: 20091009
  Serious: Yes (Hospitalization)
  Sender: FDA-Public Use
  Company Number: AEUSA200900166

PATIENT
  Age: 51 Year
  Sex: Female

DRUGS (30)
  1. GAMUNEX [Suspect]
     Indication: HYPOGAMMAGLOBULINAEMIA
     Dosage: 40 GM; QOW; IV
     Route: 042
     Dates: start: 20080627, end: 20090501
  2. PREDNISONE [Concomitant]
  3. CYMBALTA [Concomitant]
  4. KLONOPIN [Concomitant]
  5. CARBAMAZEPINE [Concomitant]
  6. SINGULAIR [Concomitant]
  7. ZOCOR [Concomitant]
  8. PHENERGAN [Concomitant]
  9. PROTONIX [Concomitant]
  10. RANITIDINE [Concomitant]
  11. ALBUTEROL [Concomitant]
  12. LAMICTAL [Concomitant]
  13. NAPROXEN [Concomitant]
  14. ASPIRIN [Concomitant]
  15. SYMBICORT [Concomitant]
  16. RHINOCORT [Concomitant]
  17. PULMICORT-100 [Concomitant]
  18. CHERATUSSIN [Concomitant]
  19. SEROQUEL [Concomitant]
  20. ATROVENT [Concomitant]
  21. BENICAR HCT [Concomitant]
  22. TRAMADOL HCL [Concomitant]
  23. MICARDIS HCT [Concomitant]
  24. PLAVIX [Concomitant]
  25. NITROGLYCERIN [Concomitant]
  26. ACETAMINOPHEN [Concomitant]
  27. DEXTROSE [Concomitant]
  28. DIPHENHYDRAMINE HYDROCHLORIDE [Concomitant]
  29. SODIUM CHLORIDE [Concomitant]
  30. EPIPEN [Concomitant]

REACTIONS (4)
  - CONVULSION [None]
  - MENINGITIS BACTERIAL [None]
  - MENINGITIS VIRAL [None]
  - SINUS OPERATION [None]
